FAERS Safety Report 20040746 (Version 1)
Quarter: 2021Q4

REPORT INFORMATION
  Report Type: Spontaneous
  Country: US (occurrence: None)
  Receive Date: 20211105
  Receipt Date: 20211105
  Transmission Date: 20220304
  Serious: Yes (Hospitalization)
  Sender: FDA-Public Use
  Company Number: None

PATIENT
  Age: 53 Year
  Sex: Male
  Weight: 69.4 kg

DRUGS (5)
  1. BELATACEPT [Suspect]
     Active Substance: BELATACEPT
     Indication: Renal transplant
     Route: 042
     Dates: start: 20210830, end: 20211022
  2. TYLENOL [Concomitant]
     Active Substance: ACETAMINOPHEN
  3. COLACE [Concomitant]
     Active Substance: DOCUSATE SODIUM
  4. sulfamethoxazole-trimethoprim (BAC [Concomitant]
  5. DELTASONE [Concomitant]
     Active Substance: PREDNISONE

REACTIONS (7)
  - SARS-CoV-2 test positive [None]
  - Pyrexia [None]
  - Pain [None]
  - Cough [None]
  - Renal pain [None]
  - Sinus operation [None]
  - Decreased appetite [None]

NARRATIVE: CASE EVENT DATE: 20211104
